FAERS Safety Report 14101848 (Version 3)
Quarter: 2018Q3

REPORT INFORMATION
  Report Type: Report from Study
  Country: AT (occurrence: AT)
  Receive Date: 20171018
  Receipt Date: 20180816
  Transmission Date: 20181010
  Serious: Yes (Hospitalization)
  Sender: FDA-Public Use
  Company Number: AT-ROCHE-1869473

PATIENT
  Age: 75 Year
  Sex: Male
  Weight: 72 kg

DRUGS (29)
  1. DOXORUBICIN [Suspect]
     Active Substance: DOXORUBICIN
     Indication: B-CELL LYMPHOMA
     Dosage: MOST RECENT DOSE: 25/NOV/2016 (100 MG)?MOST RECENT DOSE: 16/DEC/2016 (95 MG).?ROUTE AND STARTING DOS
     Route: 042
     Dates: start: 20161014
  2. ALLOSTAD [Concomitant]
     Active Substance: ALLOPURINOL
     Indication: HYPERURICAEMIA
  3. TAMSULOSIN [Concomitant]
     Active Substance: TAMSULOSIN
     Indication: BENIGN PROSTATIC HYPERPLASIA
  4. FINASTERID [Concomitant]
     Active Substance: FINASTERIDE
     Indication: BENIGN PROSTATIC HYPERPLASIA
  5. ZOFRAN [Concomitant]
     Active Substance: ONDANSETRON HYDROCHLORIDE
     Dosage: 1 AMPOULE?COMCOMITANT MEDICATION FOR CTX REGIMEN
     Route: 042
     Dates: start: 20161216, end: 20161216
  6. ZOFRAN [Concomitant]
     Active Substance: ONDANSETRON HYDROCHLORIDE
     Dosage: NAUSEA PROPHYLAXIS
     Route: 065
     Dates: start: 20161015
  7. TEMESTA (AUSTRIA) [Concomitant]
     Indication: INSOMNIA
     Route: 065
     Dates: start: 20161202, end: 201612
  8. NEULASTA [Concomitant]
     Active Substance: PEGFILGRASTIM
     Route: 065
     Dates: start: 20161217, end: 20161217
  9. ZOLDEM [Concomitant]
     Active Substance: ZOLPIDEM TARTRATE
     Route: 065
     Dates: start: 20161125, end: 20161125
  10. UROMITEXAN [Concomitant]
     Active Substance: MESNA
     Route: 065
     Dates: start: 20161125, end: 20161125
  11. CYCLOPHOSPHAMIDE. [Suspect]
     Active Substance: CYCLOPHOSPHAMIDE
     Indication: B-CELL LYMPHOMA
     Dosage: MOST RECENT DOSE: 25/NOV/2016 (1500 MG)?MOST RECENT DOSE: 16/DEC/2016 (1400 MG).?ROUTE AND STARTING
     Route: 042
     Dates: start: 20161014
  12. UROMITEXAN [Concomitant]
     Active Substance: MESNA
     Route: 065
     Dates: start: 20161216, end: 20161216
  13. MEXALEN [Concomitant]
     Active Substance: ACETAMINOPHEN
     Route: 065
     Dates: start: 20161216, end: 20161216
  14. VINCRISTINE [Suspect]
     Active Substance: VINCRISTINE
     Indication: B-CELL LYMPHOMA
     Dosage: MOST RECENT DOSE: 25/NOV/2016 (2 MG)?MOST RECENT DOSE: 16/DEC/2016  (2 MG).?ROUTE AND STARTING DOSE
     Route: 042
     Dates: start: 20161014
  15. PREDNISONE. [Suspect]
     Active Substance: PREDNISONE
     Indication: B-CELL LYMPHOMA
     Dosage: MOST RECENT DOSE: 29/NOV/2016 (100 MG)?MOST RECENT DOSE PRIOR TO TACHYCARDIA: 17/DEC/2016 (100 MG).
     Route: 048
     Dates: start: 20161014
  16. TAVANIC [Concomitant]
     Active Substance: LEVOFLOXACIN
     Indication: INFECTION PROPHYLAXIS
     Route: 065
     Dates: start: 20161017
  17. MEXALEN [Concomitant]
     Active Substance: ACETAMINOPHEN
     Route: 065
     Dates: start: 20161125, end: 20161125
  18. ZOFRAN [Concomitant]
     Active Substance: ONDANSETRON HYDROCHLORIDE
     Indication: PROPHYLAXIS OF NAUSEA AND VOMITING
     Dosage: 1 AMPOULE?COMCOMITANT MEDICATION FOR CTX REGIMEN
     Route: 042
     Dates: start: 20161125, end: 20161125
  19. VFEND [Concomitant]
     Active Substance: VORICONAZOLE
     Indication: PROPHYLAXIS
     Route: 065
     Dates: start: 201612, end: 201701
  20. DIFLUCAN [Concomitant]
     Active Substance: FLUCONAZOLE
     Indication: STOMATITIS
     Route: 065
     Dates: start: 20161202, end: 201612
  21. VENETOCLAX. [Suspect]
     Active Substance: VENETOCLAX
     Indication: B-CELL LYMPHOMA
     Dosage: MOST RECENT DOSE PRIOR TO INFECTION: 04/DEC/2016 (800 MG).?MOST RECENT DOSE PRIOR TO TACHYCARDIA: 17
     Route: 048
     Dates: start: 20161017
  22. RITUXIMAB. [Suspect]
     Active Substance: RITUXIMAB
     Indication: B-CELL LYMPHOMA
     Dosage: MOST RECENT DOSE: 25/NOV/2016 (750 MG)?MOST RECENT DOSE: 16/DEC/2016 (700 MG).?STARTING DOSE AND ROU
     Route: 042
     Dates: start: 20161014
  23. LOVASTATIN. [Concomitant]
     Active Substance: LOVASTATIN
     Indication: HYPERCHOLESTEROLAEMIA
  24. VALSARTAN. [Concomitant]
     Active Substance: VALSARTAN
     Indication: HYPERTENSION
  25. NEULASTA [Concomitant]
     Active Substance: PEGFILGRASTIM
     Indication: PROPHYLAXIS
     Route: 065
     Dates: start: 20161126, end: 20161126
  26. MOLAXOLE [Concomitant]
     Active Substance: POLYETHYLENE GLYCOL 3350\POTASSIUM CHLORIDE\SODIUM BICARBONATE\SODIUM CHLORIDE
     Indication: CONSTIPATION PROPHYLAXIS
     Route: 065
     Dates: start: 20161104
  27. DIBONDRIN [Concomitant]
     Active Substance: DIPHENHYDRAMINE HYDROCHLORIDE
     Route: 065
     Dates: start: 20161216, end: 20161216
  28. NEULASTA [Concomitant]
     Active Substance: PEGFILGRASTIM
     Route: 065
     Dates: start: 20161105, end: 20161105
  29. DIBONDRIN [Concomitant]
     Active Substance: DIPHENHYDRAMINE HYDROCHLORIDE
     Route: 065
     Dates: start: 20161125, end: 20161125

REACTIONS (4)
  - Infection [Recovered/Resolved]
  - Tachycardia [Recovered/Resolved]
  - Cardiogenic shock [Recovered/Resolved]
  - Pneumonia [Recovered/Resolved]

NARRATIVE: CASE EVENT DATE: 20161205
